FAERS Safety Report 4522577-8 (Version None)
Quarter: 2004Q4

REPORT INFORMATION
  Report Type: 
  Country: None (occurrence: None)
  Receive Date: 20041207
  Receipt Date: 20041129
  Transmission Date: 20050328
  Serious: Yes (Hospitalization)
  Sender: FDA-Public Use
  Company Number: 2004099901

PATIENT
  Age: 84 Year
  Sex: Female

DRUGS (9)
  1. TAHOR (ATORVASTATIN) [Suspect]
     Indication: ILL-DEFINED DISORDER
     Dosage: (1 IN 1 D) ORAL
     Route: 048
     Dates: end: 20040921
  2. ZOPICLONE [Concomitant]
  3. MIANSERIN [Concomitant]
  4. PROPAFENONE HYDROCHLORIDE [Concomitant]
  5. ESOMEPRAZOLE [Concomitant]
  6. ALPRAZOLAM [Concomitant]
  7. DOMPERIDONE [Concomitant]
  8. ALL OTHER THERAPEUTIC PRODUCTS [Concomitant]
  9. ALVERINE [Concomitant]

REACTIONS (3)
  - ABDOMINAL PAIN [None]
  - RHABDOMYOLYSIS [None]
  - VOMITING [None]
